FAERS Safety Report 5118810-4 (Version None)
Quarter: 2006Q4

REPORT INFORMATION
  Report Type: 
  Country: None (occurrence: None)
  Receive Date: 20061002
  Receipt Date: 20060718
  Transmission Date: 20070319
  Serious: Yes (Hospitalization)
  Sender: FDA-Public Use
  Company Number: US-BRISTOL-MYERS SQUIBB COMPANY-13446885

PATIENT
  Age: 59 Year
  Sex: Female

DRUGS (4)
  1. ORENCIA [Suspect]
     Indication: RHEUMATOID ARTHRITIS
     Route: 042
     Dates: start: 20040419
  2. METHOTREXATE [Suspect]
     Route: 048
     Dates: start: 20030307
  3. FOLIC ACID [Concomitant]
     Dates: start: 19910101
  4. ASPIRIN [Concomitant]

REACTIONS (2)
  - ABDOMINAL PAIN LOWER [None]
  - DIVERTICULITIS [None]
